FAERS Safety Report 18221748 (Version 1)
Quarter: 2020Q3

REPORT INFORMATION
  Report Type: Report from Study
  Country: None (occurrence: US)
  Receive Date: 20200902
  Receipt Date: 20200902
  Transmission Date: 20201103
  Serious: Yes (Other)
  Sender: FDA-Public Use
  Company Number: US-ABBVIE-20K-163-3548127-00

PATIENT
  Age: 92 Year
  Sex: Male

DRUGS (3)
  1. VENCLEXTA [Suspect]
     Active Substance: VENETOCLAX
     Indication: ACUTE MYELOID LEUKAEMIA
     Dosage: TAKE 1 TABLET BY MOUTH DAILY ON DAY 1 OF TREATMENT
     Route: 048
  2. VENCLEXTA [Suspect]
     Active Substance: VENETOCLAX
     Dosage: TAKE 1 TABLET BY MOUTH ON DAY 2 THEN DAY 3 TAKE 2 TABLETS DAILY AND THEREAFTER
     Route: 048
  3. VENCLEXTA [Suspect]
     Active Substance: VENETOCLAX
     Dosage: TAKE 1 TABLET BY MOUTH ON DAY 2, THEN DAY 3 TAKE 2 TABLETS DAILY AND THEREAFTER
     Route: 048

REACTIONS (1)
  - Hospice care [Unknown]

NARRATIVE: CASE EVENT DATE: 202008
